FAERS Safety Report 9172971 (Version 3)
Quarter: 2013Q4

REPORT INFORMATION
  Report Type: Report from Study
  Country: JP (occurrence: JP)
  Receive Date: 20130320
  Receipt Date: 20131217
  Transmission Date: 20140711
  Serious: Yes (Death, Disabling)
  Sender: FDA-Public Use
  Company Number: JP-MERCK-1201USA01250

PATIENT
  Age: 77 Year
  Sex: Male

DRUGS (27)
  1. ZOLINZA CAPSULES 100MG [Suspect]
     Indication: MYCOSIS FUNGOIDES
     Dosage: 400 MG, QD
     Route: 048
     Dates: start: 20111108, end: 20111111
  2. ZOLINZA CAPSULES 100MG [Suspect]
     Dosage: 200 MG, QD
     Route: 048
     Dates: start: 20111112, end: 20111114
  3. ZOLINZA CAPSULES 100MG [Suspect]
     Dosage: 200 MG QD, ONLY WEEKDAY
     Route: 048
     Dates: start: 20111128, end: 20111206
  4. ZOLINZA CAPSULES 100MG [Suspect]
     Dosage: 100 MG QD, TAKING IN WEEKDAY
     Route: 048
     Dates: start: 20111215, end: 20111223
  5. ZOLINZA CAPSULES 100MG [Suspect]
     Dosage: 100 MG, QD
     Route: 048
     Dates: start: 20120106, end: 20120106
  6. ZOLINZA CAPSULES 100MG [Suspect]
     Dosage: 100 MG, QD
     Route: 048
     Dates: start: 20120109, end: 20120113
  7. ZOLINZA CAPSULES 100MG [Suspect]
     Dosage: 100 MG, QD
     Route: 048
     Dates: start: 20120116, end: 20120118
  8. ZOLINZA CAPSULES 100MG [Suspect]
     Dosage: 100 MG, QD
     Route: 048
     Dates: start: 20120123, end: 20120123
  9. ZOLINZA CAPSULES 100MG [Suspect]
     Dosage: 100 MG, QD
     Route: 048
     Dates: start: 20120126, end: 20120127
  10. ZOLINZA CAPSULES 100MG [Suspect]
     Dosage: 100 MG, QD
     Route: 048
     Dates: start: 20120130, end: 20120203
  11. ZOLINZA CAPSULES 100MG [Suspect]
     Dosage: 100 MG, QD
     Route: 048
     Dates: start: 20120206, end: 20120210
  12. ZOLINZA CAPSULES 100MG [Suspect]
     Dosage: 100 MG, QD
     Route: 048
     Dates: start: 20120213, end: 20120217
  13. ZOLINZA CAPSULES 100MG [Suspect]
     Dosage: 100 MG, QD
     Route: 048
     Dates: start: 20120220, end: 20120224
  14. ZOLINZA CAPSULES 100MG [Suspect]
     Dosage: 100 MG, QD
     Route: 048
     Dates: start: 20120227, end: 20120302
  15. ZOLINZA CAPSULES 100MG [Suspect]
     Dosage: 100 MG, QD
     Route: 048
     Dates: start: 20120305, end: 20120309
  16. ZOLINZA CAPSULES 100MG [Suspect]
     Dosage: 100 MG, QD
     Route: 048
     Dates: start: 20120312, end: 20120316
  17. ZOLINZA CAPSULES 100MG [Suspect]
     Dosage: 100 MG, QD
     Route: 048
     Dates: start: 20120319, end: 20120323
  18. ZOLINZA CAPSULES 100MG [Suspect]
     Dosage: 100 MG, QD
     Route: 048
     Dates: start: 20120326, end: 20120330
  19. ZOLINZA CAPSULES 100MG [Suspect]
     Dosage: 100 MG, QD
     Route: 048
     Dates: start: 20120402, end: 20120406
  20. ZOLINZA CAPSULES 100MG [Suspect]
     Dosage: 100 MG, QD
     Route: 048
     Dates: start: 20120409, end: 20120413
  21. LAMISIL [Suspect]
     Indication: BODY TINEA
     Dosage: 125 MG, QD
     Route: 048
     Dates: start: 20110929, end: 20111111
  22. PREDONINE [Concomitant]
     Indication: MYCOSIS FUNGOIDES
     Dosage: 5 MG, QM
     Route: 048
     Dates: start: 20110609
  23. MYSLEE [Concomitant]
     Indication: MYCOSIS FUNGOIDES
     Dosage: 5 MG, BEFORE SLEEPING
     Route: 048
     Dates: start: 20110704
  24. ATARAX P [Concomitant]
     Indication: MYCOSIS FUNGOIDES
     Dosage: 25 MG, BEFORE SLEEPING
     Route: 048
     Dates: start: 20110704
  25. ALLELOCK [Concomitant]
     Indication: MYCOSIS FUNGOIDES
     Dosage: 10 MG, MORNING AND AFTER DINN ER
     Route: 048
     Dates: start: 20111007
  26. PROMAC (POLAPREZINC) [Concomitant]
     Indication: MYCOSIS FUNGOIDES
     Dosage: 150 MG, AFTER THE BREAKFAST AND BEFORE SLEEPING
     Route: 048
     Dates: start: 20110808
  27. GOSHA-JINKI-GAN [Concomitant]
     Indication: MYCOSIS FUNGOIDES
     Dosage: 7.5 MG, BEFORE MEAL
     Route: 048
     Dates: start: 20110622, end: 20121018

REACTIONS (8)
  - Death [Fatal]
  - Renal impairment [Recovered/Resolved]
  - Hepatic function abnormal [Recovered/Resolved]
  - Hyperglycaemia [Recovered/Resolved]
  - Platelet count decreased [Recovered/Resolved]
  - Fibrin D dimer increased [Recovered/Resolved]
  - Thrombosis [Not Recovered/Not Resolved]
  - Overdose [Unknown]
